FAERS Safety Report 7206231-X (Version None)
Quarter: 2010Q4

REPORT INFORMATION
  Report Type: 
  Country: None (occurrence: None)
  Receive Date: 20101217
  Receipt Date: 20101203
  Transmission Date: 20110411
  Serious: Yes (Other)
  Sender: FDA-Public Use
  Company Number: 2010SP003463

PATIENT
  Age: 48 Year
  Sex: Male

DRUGS (4)
  1. ALVESCO [Suspect]
     Indication: ASTHMA
     Dosage: 200 UG; BID; INHALATION
     Route: 055
     Dates: start: 20101101, end: 20101102
  2. UNIPHYL [Concomitant]
  3. PRANLUKAST [Concomitant]
  4. PRE MEDS [Concomitant]

REACTIONS (1)
  - DYSPNOEA [None]
